FAERS Safety Report 24191504 (Version 5)
Quarter: 2024Q4

REPORT INFORMATION
  Report Type: Spontaneous
  Country: US (occurrence: US)
  Receive Date: 20240808
  Receipt Date: 20241219
  Transmission Date: 20250115
  Serious: Yes (Hospitalization)
  Sender: JOHNSON AND JOHNSON
  Company Number: US-009507513-2406USA005512

PATIENT
  Age: 86 Year
  Sex: Male
  Weight: 104.3 kg

DRUGS (9)
  1. XARELTO [Suspect]
     Active Substance: RIVAROXABAN
     Indication: Atrial fibrillation
     Dosage: 20 MG, QD
     Route: 048
     Dates: start: 20230810, end: 20240614
  2. VERICIGUAT [Suspect]
     Active Substance: VERICIGUAT
     Indication: Heart failure with reduced ejection fraction
     Dosage: UNK
     Route: 048
     Dates: start: 20240807, end: 20241204
  3. VERICIGUAT [Suspect]
     Active Substance: VERICIGUAT
     Dosage: UNK
     Route: 048
     Dates: start: 20221004, end: 20240806
  4. FARXIGA [Concomitant]
     Active Substance: DAPAGLIFLOZIN PROPANEDIOL
     Indication: Cardiac failure
     Dosage: 10 MG, QD
     Route: 048
     Dates: start: 20210929
  5. FUROSEMIDE [Concomitant]
     Active Substance: FUROSEMIDE
     Indication: Cardiac failure
     Dosage: 40 MG, QD
     Route: 048
     Dates: start: 20191016, end: 20240806
  6. METOPROLOL SUCCINATE [Concomitant]
     Active Substance: METOPROLOL SUCCINATE
     Indication: Cardiac failure
     Dosage: 200 MG, QD
     Route: 048
     Dates: start: 20150627
  7. ENTRESTO [Concomitant]
     Active Substance: SACUBITRIL\VALSARTAN
     Indication: Cardiac failure
     Dosage: 50 MG, BID
     Route: 048
     Dates: start: 20191016
  8. SPIRONOLACTONE [Concomitant]
     Active Substance: SPIRONOLACTONE
     Indication: Cardiac failure
     Dosage: 25 MG, QD
     Route: 048
     Dates: start: 20191119, end: 20240806
  9. ROSUVASTATIN [Concomitant]
     Active Substance: ROSUVASTATIN
     Indication: Hyperlipidaemia
     Dosage: 20 MG, QD
     Route: 048
     Dates: start: 20230728

REACTIONS (1)
  - Anaemia [Recovered/Resolved]

NARRATIVE: CASE EVENT DATE: 20240613
